FAERS Safety Report 17430358 (Version 1)
Quarter: 2020Q1

REPORT INFORMATION
  Report Type: Spontaneous
  Country: US (occurrence: US)
  Receive Date: 20200215
  Receipt Date: 20200215
  Transmission Date: 20200409
  Serious: Yes (Disabling, Congenital Anomaly)
  Sender: FDA-Public Use
  Company Number: None

PATIENT
  Age: 29 Year
  Sex: Female
  Weight: 112.5 kg

DRUGS (1)
  1. DIFLUCAN [Suspect]
     Active Substance: FLUCONAZOLE
     Indication: FUNGAL INFECTION
     Dates: start: 20190920, end: 20190921

REACTIONS (3)
  - Maternal exposure during pregnancy [None]
  - Craniosynostosis [None]
  - Foetal exposure during pregnancy [None]

NARRATIVE: CASE EVENT DATE: 20190920
